FAERS Safety Report 9162543 (Version 1)
Quarter: 2013Q1

REPORT INFORMATION
  Report Type: Spontaneous
  Country: SK (occurrence: SK)
  Receive Date: 20130314
  Receipt Date: 20130314
  Transmission Date: 20140127
  Serious: Yes (Other)
  Sender: FDA-Public Use
  Company Number: SK-PFIZER INC-2013084352

PATIENT
  Sex: Female

DRUGS (1)
  1. XALKORI [Suspect]

REACTIONS (1)
  - Pancreatitis [Unknown]
